FAERS Safety Report 13988609 (Version 2)
Quarter: 2018Q3

REPORT INFORMATION
  Report Type: Spontaneous
  Country: US (occurrence: US)
  Receive Date: 20170919
  Receipt Date: 20180719
  Transmission Date: 20181010
  Serious: No
  Sender: FDA-Public Use
  Company Number: US-BIOGEN-2017BI00458504

PATIENT
  Sex: Female

DRUGS (2)
  1. TYSABRI [Suspect]
     Active Substance: NATALIZUMAB
     Route: 065
     Dates: start: 20170912
  2. TYSABRI [Suspect]
     Active Substance: NATALIZUMAB
     Indication: MULTIPLE SCLEROSIS
     Route: 065
     Dates: start: 20140708, end: 20161026

REACTIONS (8)
  - Gastrointestinal disorder [Unknown]
  - Procedural complication [Recovered/Resolved]
  - Temporomandibular joint syndrome [Not Recovered/Not Resolved]
  - Band sensation [Not Recovered/Not Resolved]
  - Eating disorder [Unknown]
  - Barrett^s oesophagus [Not Recovered/Not Resolved]
  - Tooth loss [Recovered/Resolved]
  - Tooth disorder [Unknown]
